FAERS Safety Report 11824535 (Version 3)
Quarter: 2017Q2

REPORT INFORMATION
  Report Type: Report from Study
  Country: US (occurrence: US)
  Receive Date: 20151210
  Receipt Date: 20170522
  Transmission Date: 20170829
  Serious: Yes (Hospitalization)
  Sender: FDA-Public Use
  Company Number: US-ACTELION-A-US2015-128423

PATIENT
  Age: 58 Year
  Sex: Female

DRUGS (1)
  1. OPSUMIT [Suspect]
     Active Substance: MACITENTAN
     Indication: PULMONARY HYPERTENSION
     Dosage: 10 MG, UNK
     Route: 048
     Dates: start: 20150209

REACTIONS (4)
  - Dyspnoea [Recovered/Resolved]
  - Hip arthroplasty [Recovered/Resolved]
  - Pneumonia [Recovered/Resolved]
  - Atrial flutter [Recovered/Resolved]

NARRATIVE: CASE EVENT DATE: 20170320
